FAERS Safety Report 5708329-1 (Version None)
Quarter: 2008Q2

REPORT INFORMATION
  Report Type: 
  Country: None (occurrence: None)
  Receive Date: 20080417
  Receipt Date: 20080407
  Transmission Date: 20081010
  Serious: Yes (Hospitalization)
  Sender: FDA-Public Use
  Company Number: FR-KINGPHARMUSA00001-K200800402

PATIENT

DRUGS (5)
  1. SEPTRA [Suspect]
     Indication: DIARRHOEA
     Dosage: UNK, UNK
     Dates: start: 20051201
  2. SEPTRA [Suspect]
     Indication: OCULAR ICTERUS
  3. CEFIXIME CHEWABLE [Suspect]
     Indication: DIARRHOEA
     Dates: start: 20051201
  4. CEFIXIME CHEWABLE [Suspect]
     Indication: OCULAR ICTERUS
  5. VITAMINS NOS [Concomitant]
     Indication: VITAMIN SUPPLEMENTATION
     Dosage: UNK, UNK
     Route: 065
     Dates: start: 20051201

REACTIONS (8)
  - BLOOD CREATININE INCREASED [None]
  - DRUG RASH WITH EOSINOPHILIA AND SYSTEMIC SYMPTOMS [None]
  - EOSINOPHILIA [None]
  - GLOMERULONEPHRITIS MINIMAL LESION [None]
  - MONOCYTOSIS [None]
  - PYREXIA [None]
  - RENAL FAILURE ACUTE [None]
  - TUBULOINTERSTITIAL NEPHRITIS [None]
